FAERS Safety Report 13489620 (Version 1)
Quarter: 2017Q2

REPORT INFORMATION
  Report Type: Spontaneous
  Country: US (occurrence: US)
  Receive Date: 20170427
  Receipt Date: 20170427
  Transmission Date: 20170830
  Serious: Yes (Hospitalization, Other)
  Sender: FDA-Public Use
  Company Number: US-ASTELLAS-2017US007584

PATIENT
  Age: 88 Year
  Sex: Male

DRUGS (3)
  1. XTANDI [Suspect]
     Active Substance: ENZALUTAMIDE
     Route: 048
     Dates: start: 20170205
  2. XTANDI [Suspect]
     Active Substance: ENZALUTAMIDE
     Dates: end: 20170416
  3. XTANDI [Suspect]
     Active Substance: ENZALUTAMIDE
     Indication: PROSTATE CANCER
     Route: 048
     Dates: start: 20160228

REACTIONS (9)
  - Gout [Unknown]
  - Malaise [Unknown]
  - Peripheral swelling [Unknown]
  - Fatigue [Unknown]
  - Seizure [Unknown]
  - Decreased appetite [Unknown]
  - Vomiting [Unknown]
  - Drug ineffective [Unknown]
  - Transient ischaemic attack [Unknown]

NARRATIVE: CASE EVENT DATE: 20170210
